FAERS Safety Report 8021342-7 (Version None)
Quarter: 2012Q1

REPORT INFORMATION
  Report Type: 
  Country: None (occurrence: None)
  Receive Date: 20120104
  Receipt Date: 20111222
  Transmission Date: 20120608
  Serious: Yes (Hospitalization)
  Sender: FDA-Public Use
  Company Number: US-BAYER-2011-036216

PATIENT
  Age: 21 Year
  Sex: Female
  Weight: 64.399 kg

DRUGS (5)
  1. YAZ [Suspect]
     Dosage: UNK
     Dates: start: 20080701, end: 20090724
  2. CELEXA [Concomitant]
     Dosage: 20 MG, QD
  3. IBUPROFEN (ADVIL) [Concomitant]
  4. AMOXICILLIN [Concomitant]
  5. PROTONIX [Concomitant]
     Dosage: 40 MG, QD

REACTIONS (7)
  - OEDEMA PERIPHERAL [None]
  - EMOTIONAL DISTRESS [None]
  - DEEP VEIN THROMBOSIS [None]
  - ANXIETY [None]
  - PAIN [None]
  - DYSPNOEA [None]
  - PULMONARY EMBOLISM [None]
